FAERS Safety Report 8589606-6 (Version None)
Quarter: 2012Q3

REPORT INFORMATION
  Report Type: 
  Country: None (occurrence: None)
  Receive Date: 20120813
  Receipt Date: 20120807
  Transmission Date: 20120928
  Serious: Yes (Disabling)
  Sender: FDA-Public Use
  Company Number: IL-ROCHE-1043435

PATIENT
  Age: 60 Year
  Sex: Female
  Weight: 51.5 kg

DRUGS (7)
  1. FEXOFENADINE HCL [Concomitant]
  2. PREDNISONE TAB [Concomitant]
     Dates: start: 20120223
  3. ZELBORAF [Suspect]
     Indication: METASTATIC MALIGNANT MELANOMA
     Route: 048
     Dates: start: 20110623, end: 20120130
  4. PAMIDRONATE DISODIUM [Suspect]
     Dates: start: 20110303
  5. PREDNISONE TAB [Concomitant]
     Dates: start: 20110704
  6. ZELBORAF [Suspect]
     Dosage: DOSE DCREASED
     Route: 048
     Dates: start: 20110711, end: 20120130
  7. PAMIDRONATE DISODIUM [Suspect]
     Indication: BONE PAIN
     Dosage: ROUTE, DOSE, FORM AND FREQUENCY: NOT REPORTED
     Dates: start: 20110201

REACTIONS (1)
  - GLOMERULONEPHRITIS MINIMAL LESION [None]
